FAERS Safety Report 8963207 (Version 1)
Quarter: 2012Q4

REPORT INFORMATION
  Report Type: 
  Country: GB (occurrence: GB)
  Receive Date: 20121213
  Receipt Date: 20121213
  Transmission Date: 20130627
  Serious: Yes (Other)
  Sender: FDA-Public Use
  Company Number: GB-ASTRAZENECA-2012SE91775

PATIENT
  Age: 25202 Day
  Sex: Male
  Weight: 73 kg

DRUGS (11)
  1. SYMBICORT [Suspect]
     Indication: ASTHMA
     Dosage: 2 DF TWO TIMES A DAY
     Route: 055
     Dates: start: 20110316, end: 20110327
  2. ANUSOL [Concomitant]
  3. ASPIRIN [Concomitant]
  4. ATORVASTATIN [Concomitant]
  5. MOMETASONE FUROATE [Concomitant]
  6. RAMIPRIL [Concomitant]
  7. RANITIDINE [Concomitant]
  8. SALBUTAMOL [Concomitant]
  9. SERETIDE [Concomitant]
     Indication: ASTHMA
  10. SERTRALINE HYDROCHLORIDE [Concomitant]
     Indication: DEPRESSION
     Dates: start: 20110207
  11. TILDIEM LA [Concomitant]

REACTIONS (1)
  - Anger [Recovered/Resolved]
